FAERS Safety Report 12800766 (Version 3)
Quarter: 2017Q4

REPORT INFORMATION
  Report Type: Spontaneous
  Country: US (occurrence: US)
  Receive Date: 20161002
  Receipt Date: 20171011
  Transmission Date: 20180320
  Serious: No
  Sender: FDA-Public Use
  Company Number: US-ASTRAZENECA-2016SF00658

PATIENT
  Age: 23505 Day
  Sex: Male
  Weight: 111.1 kg

DRUGS (7)
  1. FARXIGA [Suspect]
     Active Substance: DAPAGLIFLOZIN PROPANEDIOL
     Route: 048
  2. NEURONTIN [Concomitant]
     Active Substance: GABAPENTIN
     Indication: NEUROPATHY PERIPHERAL
     Dosage: 300.0MG UNKNOWN
     Route: 048
  3. ADVAIR HFA [Concomitant]
     Active Substance: FLUTICASONE PROPIONATE\SALMETEROL XINAFOATE
     Indication: ASTHMA
     Dosage: 550.0MG UNKNOWN
     Route: 055
  4. VENTALIN [Concomitant]
     Indication: PROPHYLAXIS
     Dosage: INTERMITTENT
     Route: 055
  5. GLYBURIDE. [Concomitant]
     Active Substance: GLYBURIDE
     Indication: TYPE 2 DIABETES MELLITUS
     Dosage: 5.0MG UNKNOWN
     Route: 048
  6. BYDUREON [Suspect]
     Active Substance: EXENATIDE
     Indication: TYPE 2 DIABETES MELLITUS
     Route: 058
     Dates: start: 20160828
  7. METFORMIN [Concomitant]
     Active Substance: METFORMIN HYDROCHLORIDE
     Indication: TYPE 2 DIABETES MELLITUS
     Dosage: UNKNOWN
     Route: 048

REACTIONS (5)
  - Injection site pain [Unknown]
  - Device issue [Unknown]
  - Chronic obstructive pulmonary disease [Unknown]
  - Intentional product misuse [Unknown]
  - Injection site swelling [Unknown]

NARRATIVE: CASE EVENT DATE: 20160828
